FAERS Safety Report 10998282 (Version 2)
Quarter: 2015Q2

REPORT INFORMATION
  Report Type: Spontaneous
  Country: RU (occurrence: None)
  Receive Date: 20150406
  Receipt Date: 20150514
  Transmission Date: 20150821
  Serious: No
  Sender: FDA-Public Use
  Company Number: RU2014GSK005729

PATIENT
  Age: 33 Year
  Sex: Female

DRUGS (6)
  1. COMBIVIR (LAMIVUDINE, ZIDOVUDINE) [Concomitant]
  2. MARAVIROC [Suspect]
     Active Substance: MARAVIROC
     Indication: HIV INFECTION
     Route: 048
     Dates: start: 20110825, end: 20140822
  3. EPIVIR [Concomitant]
     Active Substance: LAMIVUDINE
  4. DUPHASTON (DYDROGESTERONE) [Concomitant]
  5. KALETRA [Concomitant]
     Active Substance: LOPINAVIR\RITONAVIR
  6. VIDEX (DIDANOSINE) [Concomitant]

REACTIONS (4)
  - Maternal exposure during pregnancy [None]
  - Caesarean section [None]
  - Premature delivery [None]
  - Stillbirth [None]

NARRATIVE: CASE EVENT DATE: 20150205
